FAERS Safety Report 5652736-2 (Version None)
Quarter: 2008Q1

REPORT INFORMATION
  Report Type: 
  Country: None (occurrence: None)
  Receive Date: 20080305
  Receipt Date: 20080305
  Transmission Date: 20080703
  Serious: Yes (Hospitalization)
  Sender: FDA-Public Use
  Company Number: None

PATIENT
  Sex: Female
  Weight: 12 kg

DRUGS (6)
  1. CYCLOPHOSPHAMIDE [Suspect]
     Dosage: 1140 MG  570MG GIVEN X 2, 1ST DOSE ON 12/14 AND 2ND DOSE ON 01/23
  2. CYTARABINE [Suspect]
     Dosage: 720 MG  45MG SQ X 16 DOSES, GIVEN IN 4 DAY PULSES X 4
     Route: 058
  3. MERCAPTOPURINE [Suspect]
     Dosage: 1008 MG   36MG QDAY X 28 DOSES TOTAL, GIVEN X 14 DAYS X 2
  4. METHOTREXATE [Suspect]
     Dosage: 40 MG  10MG IT X 4 DOSES ON DAYS 1,8, 15, AND 22
     Route: 037
  5. PEG-L-ASPARAGINASE (K-H) [Suspect]
     Dosage: 2850 UNIT  1425 UNITS X 2 DOSES ON DAY 15 AND 43
  6. VINCRISTINE SULFATE [Suspect]
     Dosage: 3.6 MG  0.9MG IV X 4 DOSES
     Route: 042

REACTIONS (6)
  - ACUTE RESPIRATORY DISTRESS SYNDROME [None]
  - COAGULOPATHY [None]
  - HISTIOCYTOSIS HAEMATOPHAGIC [None]
  - IMMUNOSUPPRESSION [None]
  - MULTI-ORGAN FAILURE [None]
  - PSEUDOMONAL SEPSIS [None]
